FAERS Safety Report 13917230 (Version 1)
Quarter: 2017Q3

REPORT INFORMATION
  Report Type: Spontaneous
  Country: HU (occurrence: HU)
  Receive Date: 20170829
  Receipt Date: 20170829
  Transmission Date: 20171127
  Serious: Yes (Hospitalization, Other)
  Sender: FDA-Public Use
  Company Number: HU-BAYER-2017-162485

PATIENT
  Age: 73 Year
  Sex: Female

DRUGS (1)
  1. ULTRAVIST [Suspect]
     Active Substance: IOPROMIDE
     Indication: COMPUTERISED TOMOGRAM
     Dosage: 90 ML, ONCE
     Route: 042
     Dates: start: 20170823, end: 20170823

REACTIONS (3)
  - Sensation of foreign body [None]
  - Hypoaesthesia oral [None]
  - Dyspnoea [None]

NARRATIVE: CASE EVENT DATE: 20170823
